FAERS Safety Report 17105201 (Version 1)
Quarter: 2019Q4

REPORT INFORMATION
  Report Type: Spontaneous
  Country: US (occurrence: US)
  Receive Date: 20191203
  Receipt Date: 20191203
  Transmission Date: 20200122
  Serious: No
  Sender: FDA-Public Use
  Company Number: US-SA-2019SA333454

PATIENT
  Age: 72 Year
  Sex: Female

DRUGS (1)
  1. DUPIXENT [Suspect]
     Active Substance: DUPILUMAB
     Indication: DERMATITIS ATOPIC
     Dosage: 300 MG, QOW
     Route: 058
     Dates: start: 20191009

REACTIONS (3)
  - Rash [Recovered/Resolved]
  - Dermatitis atopic [Recovered/Resolved]
  - Product dose omission [Recovered/Resolved]
